FAERS Safety Report 23154004 (Version 1)
Quarter: 2023Q4

REPORT INFORMATION
  Report Type: Spontaneous
  Country: DE (occurrence: DE)
  Receive Date: 20231107
  Receipt Date: 20231107
  Transmission Date: 20240110
  Serious: Yes (Hospitalization, Other)
  Sender: FDA-Public Use
  Company Number: None

PATIENT
  Age: 29 Year
  Sex: Female
  Weight: 72 kg

DRUGS (2)
  1. CYTOTEC [Suspect]
     Active Substance: MISOPROSTOL
     Indication: Abortion missed
     Dosage: 2X800
     Route: 067
     Dates: start: 20230925, end: 20230928
  2. HEPARIN [Concomitant]
     Active Substance: HEPARIN SODIUM
     Indication: Factor V deficiency
     Dosage: UNK

REACTIONS (10)
  - Haemorrhage [Not Recovered/Not Resolved]
  - Trichorrhexis [Not Recovered/Not Resolved]
  - Headache [Not Recovered/Not Resolved]
  - General physical health deterioration [Unknown]
  - Skin discomfort [Not Recovered/Not Resolved]
  - Onychoclasis [Not Recovered/Not Resolved]
  - Pallor [Not Recovered/Not Resolved]
  - Dry skin [Not Recovered/Not Resolved]
  - Uterine pain [Not Recovered/Not Resolved]
  - Off label use [Unknown]

NARRATIVE: CASE EVENT DATE: 20230925
